FAERS Safety Report 15315552 (Version 1)
Quarter: 2018Q3

REPORT INFORMATION
  Report Type: Spontaneous
  Country: US (occurrence: US)
  Receive Date: 20180824
  Receipt Date: 20180824
  Transmission Date: 20181010
  Serious: Yes (Other)
  Sender: FDA-Public Use
  Company Number: US-LPDUSPRD-20181574

PATIENT
  Age: 17 Year

DRUGS (2)
  1. GEMCITABINE [Suspect]
     Active Substance: GEMCITABINE\GEMCITABINE HYDROCHLORIDE
     Dosage: 1,000MG/M^2,DAYS 1,8,15
     Route: 042
  2. NAB?PACLITAXEL [Suspect]
     Active Substance: PACLITAXEL
     Dosage: 125MG/M^2,DAYS 1,8,15
     Route: 042

REACTIONS (2)
  - Neutropenia [Unknown]
  - Product use issue [Unknown]
